FAERS Safety Report 6037237-4 (Version None)
Quarter: 2009Q1

REPORT INFORMATION
  Report Type: 
  Country: None (occurrence: None)
  Receive Date: 20090114
  Receipt Date: 20090109
  Transmission Date: 20090719
  Serious: Yes (Hospitalization)
  Sender: FDA-Public Use
  Company Number: A0690186A

PATIENT
  Age: 52 Year
  Sex: Male
  Weight: 113.6 kg

DRUGS (4)
  1. AVANDIA [Suspect]
     Dosage: 4MG PER DAY
     Route: 048
     Dates: start: 20000101, end: 20050301
  2. AVANDAMET [Suspect]
     Route: 048
     Dates: start: 20040101, end: 20050201
  3. LIPITOR [Concomitant]
     Dates: start: 19910101
  4. HUMALOG [Concomitant]

REACTIONS (3)
  - ACUTE MYOCARDIAL INFARCTION [None]
  - INJURY [None]
  - WEIGHT DECREASED [None]
